FAERS Safety Report 8825490 (Version 3)
Quarter: 2013Q1

REPORT INFORMATION
  Report Type: Report from Study
  Country: JP (occurrence: JP)
  Receive Date: 20121004
  Receipt Date: 20130110
  Transmission Date: 20140127
  Serious: Yes (Hospitalization, Other)
  Sender: FDA-Public Use
  Company Number: JP-EISAI INC-E2020-11465-CLI-JP

PATIENT
  Age: 69 Year
  Sex: Male
  Weight: 54 kg

DRUGS (20)
  1. DONEPEZIL [Suspect]
     Indication: PARKINSON^S DISEASE
     Dosage: DOUBLE BLIND (3 MG OR PLACEBO)
     Route: 048
     Dates: start: 20110805, end: 20120818
  2. DONEPEZIL [Suspect]
     Dosage: DOUBLE BLIND (5 MG OR PLACEBO)
     Route: 048
     Dates: start: 20120819, end: 20121011
  3. COMTAN [Suspect]
     Indication: PARKINSON^S DISEASE
     Route: 048
     Dates: start: 20110826
  4. MENESIT [Suspect]
     Indication: PARKINSON^S DISEASE
     Route: 048
     Dates: start: 20111209
  5. MAGMITT [Suspect]
     Indication: CONSTIPATION
     Route: 048
  6. LIPITOR [Suspect]
     Indication: HYPERLIPIDAEMIA
     Route: 048
  7. RIVOTRIL [Suspect]
     Indication: RAPID EYE MOVEMENTS SLEEP ABNORMAL
     Route: 048
  8. TIZANIN [Suspect]
     Indication: TENSION HEADACHE
     Route: 048
     Dates: start: 20111111
  9. JZOLOFT [Suspect]
     Indication: ANXIETY
     Route: 048
  10. SENNOSIDE [Suspect]
     Indication: CONSTIPATION
     Route: 048
  11. GASMOTIN [Suspect]
     Indication: IMPAIRED GASTRIC EMPTYING
     Route: 048
  12. MOHRUS TAPE [Suspect]
     Indication: BACK PAIN
     Dosage: UNKNOWN
     Dates: start: 20110818
  13. PROPADERM [Suspect]
     Indication: DERMATITIS ATOPIC
     Route: 048
  14. BESOFTEN [Suspect]
     Indication: DERMATITIS ATOPIC
     Route: 048
  15. REQUIP [Concomitant]
     Indication: PARKINSON^S DISEASE
     Route: 048
     Dates: start: 20120302
  16. MELOXICAM [Concomitant]
     Indication: BACK PAIN
     Route: 048
     Dates: start: 20120315
  17. EURODIN [Concomitant]
     Indication: INSOMNIA
     Route: 048
     Dates: start: 20120301
  18. RITALIN [Concomitant]
     Indication: SOMNOLENCE
     Route: 048
     Dates: start: 20120329
  19. LAXOBERON [Concomitant]
     Indication: CONSTIPATION
     Dosage: UNKNOWN
     Route: 048
     Dates: start: 20120405
  20. PARIET [Concomitant]
     Indication: PROPHYLAXIS AGAINST GASTROINTESTINAL ULCER
     Route: 048
     Dates: start: 20120913

REACTIONS (3)
  - Gastric cancer [Recovered/Resolved]
  - Pancreatic fistula [None]
  - Empyema [None]
